FAERS Safety Report 14131880 (Version 6)
Quarter: 2017Q4

REPORT INFORMATION
  Report Type: Report from Study
  Country: None (occurrence: BE)
  Receive Date: 20171026
  Receipt Date: 20171130
  Transmission Date: 20180321
  Serious: Yes (Death, Life-Threatening, Hospitalization, Other)
  Sender: FDA-Public Use
  Company Number: BE-ABBVIE-17K-013-2137099-00

PATIENT
  Sex: Female

DRUGS (10)
  1. DUODOPA [Suspect]
     Active Substance: CARBIDOPA\LEVODOPA
     Dosage: DOSES CONTINUOUSLY MONITORED AND ADAPTED
     Route: 050
     Dates: start: 20130704, end: 20170322
  2. MODURETIC 5-50 [Concomitant]
     Active Substance: AMILORIDE HYDROCHLORIDE\HYDROCHLOROTHIAZIDE
     Indication: PRODUCT USED FOR UNKNOWN INDICATION
  3. OMNIBIONTA INTEGRAL [Concomitant]
     Indication: PRODUCT USED FOR UNKNOWN INDICATION
  4. DUODOPA [Suspect]
     Active Substance: CARBIDOPA\LEVODOPA
     Dosage: MD: 5 ML??CD: 3.2 ML/HR DURING 16 HRS??EDA: 1.4 ML
     Route: 050
     Dates: start: 20120806, end: 20130704
  5. LEPONEX [Concomitant]
     Active Substance: CLOZAPINE
     Indication: PRODUCT USED FOR UNKNOWN INDICATION
  6. PANTOMED (PANTOPRAZOLE SODIUM) [Concomitant]
     Active Substance: PANTOPRAZOLE SODIUM
     Indication: PRODUCT USED FOR UNKNOWN INDICATION
  7. DUODOPA [Suspect]
     Active Substance: CARBIDOPA\LEVODOPA
     Indication: PARKINSON^S DISEASE
     Dosage: UNSPECIFIED DUODOPA DOSAGES
     Route: 050
     Dates: start: 20120716, end: 20120806
  8. DUODOPA [Suspect]
     Active Substance: CARBIDOPA\LEVODOPA
     Dosage: MD: 5 ML??CD: 3.7 ML/HR DURING 16 HRS??EDA: 2 ML
     Route: 050
     Dates: start: 20170322, end: 20171012
  9. DUODOPA [Suspect]
     Active Substance: CARBIDOPA\LEVODOPA
     Dosage: MD:5 ML??CD: 3.6 TO 5 ML/HR DURING 16 HRS??EDA: 2 TO 4 ML
     Route: 050
     Dates: start: 20171012, end: 201711
  10. ANAFRANIL [Concomitant]
     Active Substance: CLOMIPRAMINE HYDROCHLORIDE
     Indication: PRODUCT USED FOR UNKNOWN INDICATION

REACTIONS (9)
  - Gastrostomy tube site complication [Unknown]
  - Embedded device [Fatal]
  - General physical health deterioration [Not Recovered/Not Resolved]
  - Peritoneal abscess [Unknown]
  - Life expectancy shortened [Unknown]
  - Gastric fibrosis [Unknown]
  - Unintentional medical device removal [Recovered/Resolved]
  - Complication associated with device [Fatal]
  - Disorientation [Unknown]

NARRATIVE: CASE EVENT DATE: 2017
